FAERS Safety Report 8456741-2 (Version None)
Quarter: 2012Q2

REPORT INFORMATION
  Report Type: 
  Country: None (occurrence: None)
  Receive Date: 20120621
  Receipt Date: 20120615
  Transmission Date: 20120825
  Serious: Yes (Other)
  Sender: FDA-Public Use
  Company Number: AU-ABBOTT-12P-008-0900787-00

PATIENT
  Sex: Male
  Weight: 80 kg

DRUGS (3)
  1. RITONAVIR [Suspect]
     Indication: HIV INFECTION
     Route: 048
     Dates: start: 20110803
  2. TRUVADA [Suspect]
     Indication: HIV INFECTION
     Dosage: 300/200MG
     Route: 048
     Dates: start: 20110803
  3. DARUNAVIR HYDRATE [Suspect]
     Indication: HIV INFECTION
     Route: 048
     Dates: start: 20110803

REACTIONS (11)
  - ADRENAL MASS [None]
  - LUNG CANCER METASTATIC [None]
  - HILAR LYMPHADENOPATHY [None]
  - PULMONARY MASS [None]
  - SMALL CELL LUNG CANCER STAGE UNSPECIFIED [None]
  - MALIGNANT MELANOMA [None]
  - METASTASES TO LIVER [None]
  - DIFFUSE LARGE B-CELL LYMPHOMA [None]
  - METASTASES TO BONE [None]
  - SOFT TISSUE MASS [None]
  - LUNG CONSOLIDATION [None]
